FAERS Safety Report 23753038 (Version 1)
Quarter: 2024Q2

REPORT INFORMATION
  Report Type: Spontaneous
  Country: US (occurrence: None)
  Receive Date: 20240417
  Receipt Date: 20240417
  Transmission Date: 20240716
  Serious: No
  Sender: FDA-Public Use
  Company Number: None

PATIENT
  Sex: Male

DRUGS (11)
  1. LENALIDOMIDE [Suspect]
     Active Substance: LENALIDOMIDE
     Indication: Plasma cell myeloma
     Dosage: FREQUENCY : DAILY;?
     Route: 048
     Dates: start: 20230906
  2. ACETAMIN [Concomitant]
  3. ALBUTEROL [Concomitant]
  4. ALLOPURINOL [Concomitant]
  5. AMLODIPINE [Concomitant]
  6. ASPIRIN [Concomitant]
     Active Substance: ASPIRIN
  7. ATORVASTATIN [Concomitant]
  8. AZELASTINE [Concomitant]
  9. BACTRIM [Concomitant]
  10. BRIMONIDINE [Concomitant]
  11. CARVEDILOL [Concomitant]

REACTIONS (2)
  - Hospitalisation [None]
  - Intentional dose omission [None]
